FAERS Safety Report 8460622-8 (Version None)
Quarter: 2012Q2

REPORT INFORMATION
  Report Type: 
  Country: None (occurrence: None)
  Receive Date: 20120622
  Receipt Date: 20120619
  Transmission Date: 20120825
  Serious: Yes (Hospitalization)
  Sender: FDA-Public Use
  Company Number: US-ROCHE-1080324

PATIENT
  Sex: Female
  Weight: 172.52 kg

DRUGS (8)
  1. QVAR 40 [Concomitant]
  2. SINGULAIR [Concomitant]
  3. VERAMYST [Concomitant]
  4. ADVAIR DISKUS 100/50 [Concomitant]
  5. RANITIDINE [Concomitant]
  6. OMALIZUMAB [Suspect]
     Route: 030
     Dates: start: 20120424
  7. ALLEGRA [Concomitant]
  8. OMALIZUMAB [Suspect]
     Indication: ASTHMA
     Route: 058
     Dates: start: 20100601, end: 20120101

REACTIONS (1)
  - BRONCHITIS [None]
